FAERS Safety Report 23845402 (Version 1)
Quarter: 2024Q2

REPORT INFORMATION
  Report Type: Spontaneous
  Country: IT (occurrence: IT)
  Receive Date: 20240511
  Receipt Date: 20240511
  Transmission Date: 20240716
  Serious: Yes (Other)
  Sender: FDA-Public Use
  Company Number: IT-002147023-NVSC2024IT096384

PATIENT
  Age: 63 Year
  Sex: Female

DRUGS (2)
  1. SECUKINUMAB [Suspect]
     Active Substance: SECUKINUMAB
     Indication: SAPHO syndrome
     Dosage: FOR FIVE WEEKS
     Route: 065
     Dates: start: 2022, end: 202209
  2. SECUKINUMAB [Suspect]
     Active Substance: SECUKINUMAB
     Dosage: EVERY 4 WEEKS
     Route: 065
     Dates: start: 2022, end: 202209

REACTIONS (2)
  - Erythema multiforme [Unknown]
  - Product use in unapproved indication [Unknown]

NARRATIVE: CASE EVENT DATE: 20220901
